FAERS Safety Report 9753158 (Version 1)
Quarter: 2013Q4

REPORT INFORMATION
  Report Type: Spontaneous
  Country: US (occurrence: US)
  Receive Date: 20131213
  Receipt Date: 20131213
  Transmission Date: 20140711
  Serious: No
  Sender: FDA-Public Use
  Company Number: US-GILEAD-2010-0026780

PATIENT
  Age: 66 Year
  Sex: Female
  Weight: 87.54 kg

DRUGS (5)
  1. LETAIRIS [Suspect]
     Indication: PULMONARY ARTERIAL HYPERTENSION
     Route: 048
     Dates: start: 20090416
  2. ADCIRCA [Concomitant]
  3. NIFEDIPINE [Concomitant]
  4. FUROSEMIDE [Concomitant]
  5. XYZAL [Concomitant]

REACTIONS (2)
  - Vomiting [Unknown]
  - Diarrhoea [Unknown]
